FAERS Safety Report 20212096 (Version 1)
Quarter: 2021Q4

REPORT INFORMATION
  Report Type: Other
  Country: US (occurrence: US)
  Receive Date: 20211221
  Receipt Date: 20211221
  Transmission Date: 20220303
  Serious: No
  Sender: FDA-Public Use
  Company Number: US-ACORDA-ACO_171060_2021

PATIENT
  Age: 67 Year
  Sex: Female

DRUGS (7)
  1. INBRIJA [Suspect]
     Active Substance: LEVODOPA
     Indication: Parkinson^s disease
     Dosage: 2 CAPSULES, TWICE DAILY AS NEEDED
     Dates: start: 20200926
  2. INBRIJA [Suspect]
     Active Substance: LEVODOPA
     Indication: On and off phenomenon
  3. ISRADIPINE [Concomitant]
     Active Substance: ISRADIPINE
     Indication: Product used for unknown indication
     Dosage: 5 MILLIGRAM
     Route: 065
  4. LISINOPRIL [Concomitant]
     Active Substance: LISINOPRIL
     Indication: Product used for unknown indication
     Dosage: 5 MILLIGRAM
     Route: 065
  5. METOPROLOL TARTRATE [Concomitant]
     Active Substance: METOPROLOL TARTRATE
     Indication: Product used for unknown indication
     Dosage: 50 MILLIGRAM
     Route: 065
  6. NEUPRO [Concomitant]
     Active Substance: ROTIGOTINE
     Indication: Product used for unknown indication
     Dosage: 4 MILLIGRAM/24HR
     Route: 065
  7. NUPLAZID [Concomitant]
     Active Substance: PIMAVANSERIN TARTRATE
     Indication: Product used for unknown indication
     Dosage: UNK
     Route: 065

REACTIONS (2)
  - Adverse event [Not Recovered/Not Resolved]
  - Product dose omission issue [Unknown]

NARRATIVE: CASE EVENT DATE: 20211101
